FAERS Safety Report 5033913-0 (Version None)
Quarter: 2006Q2

REPORT INFORMATION
  Report Type: 
  Country: None (occurrence: None)
  Receive Date: 20060623
  Receipt Date: 20060614
  Transmission Date: 20061013
  Serious: Yes (Hospitalization)
  Sender: FDA-Public Use
  Company Number: FR-ABBOTT-06P-056-0336190-00

PATIENT
  Age: 51 Year
  Sex: Male
  Weight: 105 kg

DRUGS (7)
  1. SEVORANE LIQUID FOR INHALATION [Suspect]
     Indication: ANAESTHESIA
     Route: 055
     Dates: start: 20060424, end: 20060424
  2. MIDAZOLAM [Suspect]
     Indication: ANAESTHESIA
     Route: 042
     Dates: start: 20060424, end: 20060424
  3. NIMBEX [Suspect]
     Indication: ANAESTHESIA
     Route: 042
     Dates: start: 20060424, end: 20060424
  4. SUFENTANIL CITRATE [Suspect]
     Indication: ANAESTHESIA
     Route: 042
     Dates: start: 20060424, end: 20060424
  5. PROPOFOL [Concomitant]
     Indication: ANAESTHESIA
     Route: 042
     Dates: start: 20060424, end: 20060424
  6. PROPOFOL [Concomitant]
     Indication: SEDATION
     Route: 042
     Dates: start: 20060424, end: 20060424
  7. RINGER'S [Concomitant]
     Indication: DRUG USE FOR UNKNOWN INDICATION
     Route: 042

REACTIONS (2)
  - RESPIRATORY DISTRESS [None]
  - SHOCK [None]
